FAERS Safety Report 8300257-0 (Version None)
Quarter: 2012Q2

REPORT INFORMATION
  Report Type: 
  Country: None (occurrence: None)
  Receive Date: 20120420
  Receipt Date: 20120410
  Transmission Date: 20120825
  Serious: Yes (Other)
  Sender: FDA-Public Use
  Company Number: GB-JNJFOC-20120210994

PATIENT
  Age: 48 Year
  Sex: Male

DRUGS (18)
  1. REMICADE [Suspect]
     Indication: PSORIASIS
     Route: 042
  2. GTN SPRAY [Concomitant]
     Route: 065
  3. STEROIDS NOS [Concomitant]
     Indication: PREMEDICATION
     Route: 065
  4. RABEPRAZOLE SODIUM [Concomitant]
     Route: 065
  5. VERAPAMIL [Concomitant]
     Route: 065
  6. REMICADE [Suspect]
     Route: 042
     Dates: start: 20120403
  7. REMICADE [Suspect]
     Route: 042
  8. MELOXICAM [Concomitant]
     Route: 065
  9. METHOTREXATE [Concomitant]
     Route: 065
  10. REMICADE [Suspect]
     Indication: PSORIATIC ARTHROPATHY
     Route: 042
     Dates: start: 20120206, end: 20120206
  11. ASPIRIN [Concomitant]
     Route: 065
  12. LOSARTAN POTASSIUM [Concomitant]
     Route: 065
  13. ANTIHISTAMINES [Concomitant]
     Indication: PREMEDICATION
     Route: 065
  14. REMICADE [Suspect]
     Route: 042
     Dates: start: 20120403
  15. FOLIC ACID [Concomitant]
     Route: 065
  16. REMICADE [Suspect]
     Route: 042
     Dates: start: 20120206, end: 20120206
  17. ATORVASTATIN [Concomitant]
     Route: 065
  18. CO-DYDRAMOL [Concomitant]
     Route: 065

REACTIONS (9)
  - COUGH [None]
  - LOSS OF CONSCIOUSNESS [None]
  - CHEST DISCOMFORT [None]
  - RHINORRHOEA [None]
  - INFUSION RELATED REACTION [None]
  - HEADACHE [None]
  - MALAISE [None]
  - FEELING ABNORMAL [None]
  - DYSPNOEA [None]
